FAERS Safety Report 5606107-5 (Version None)
Quarter: 2008Q1

REPORT INFORMATION
  Report Type: 
  Country: None (occurrence: None)
  Receive Date: 20080129
  Receipt Date: 20080125
  Transmission Date: 20080703
  Serious: Yes (Death, Life-Threatening, Other)
  Sender: FDA-Public Use
  Company Number: US-BRISTOL-MYERS SQUIBB COMPANY-14005078

PATIENT
  Age: 69 Year
  Sex: Male

DRUGS (14)
  1. CYTOXAN [Suspect]
     Indication: IMMUNOSUPPRESSION
  2. REMICADE [Suspect]
     Indication: VASCULITIS
     Dosage: INFLIXIMAB RECOMBINANT LYOPHILIZED POWDER.
     Route: 042
     Dates: end: 20070801
  3. REMICADE [Suspect]
     Indication: RHEUMATOID ARTHRITIS
     Dosage: INFLIXIMAB RECOMBINANT LYOPHILIZED POWDER.
     Route: 042
     Dates: end: 20070801
  4. PLAQUENIL [Suspect]
     Indication: IMMUNOSUPPRESSION
  5. PREDNISONE TAB [Suspect]
     Indication: VASCULITIS
  6. COLCHICINE [Suspect]
  7. FLECAINIDE ACETATE [Concomitant]
  8. HYTRIN [Concomitant]
  9. ATENOLOL [Concomitant]
  10. POTASSIUM CHLORIDE [Concomitant]
  11. LASIX [Concomitant]
  12. ASPIRIN [Concomitant]
     Indication: PROPHYLAXIS
  13. THEO-DUR [Concomitant]
     Indication: CHRONIC OBSTRUCTIVE PULMONARY DISEASE
  14. RESTORIL [Concomitant]
     Indication: SLEEP DISORDER

REACTIONS (2)
  - MULTI-ORGAN FAILURE [None]
  - PROGRESSIVE MULTIFOCAL LEUKOENCEPHALOPATHY [None]
